FAERS Safety Report 26003042 (Version 2)
Quarter: 2025Q4

REPORT INFORMATION
  Report Type: Spontaneous
  Country: US (occurrence: US)
  Receive Date: 20251106
  Receipt Date: 20251116
  Transmission Date: 20260117
  Serious: No
  Sender: SANOFI AVENTIS
  Company Number: US-SA-2025SA322809

PATIENT
  Age: 60 Year
  Sex: Female

DRUGS (2)
  1. DUPIXENT [Suspect]
     Active Substance: DUPILUMAB
     Indication: Eczema
     Dosage: 600 MG, 1X
     Route: 058
     Dates: start: 20241025, end: 20241025
  2. DUPIXENT [Suspect]
     Active Substance: DUPILUMAB
     Indication: Dermatitis atopic
     Dosage: 300 MG, QOW
     Route: 058
     Dates: start: 202411

REACTIONS (4)
  - Pruritus [Recovering/Resolving]
  - Rash [Recovering/Resolving]
  - Inappropriate schedule of product administration [Recovering/Resolving]
  - Dermatitis atopic [Unknown]

NARRATIVE: CASE EVENT DATE: 20251001
